FAERS Safety Report 7427778-7 (Version None)
Quarter: 2011Q2

REPORT INFORMATION
  Report Type: 
  Country: None (occurrence: None)
  Receive Date: 20110421
  Receipt Date: 20110408
  Transmission Date: 20111010
  Serious: Yes (Hospitalization)
  Sender: FDA-Public Use
  Company Number: KR-JNJFOC-20090901305

PATIENT
  Age: 71 Year
  Sex: Female
  Weight: 50 kg

DRUGS (16)
  1. REMICADE [Suspect]
     Indication: RHEUMATOID ARTHRITIS
     Dosage: 1ST INFUSION
     Route: 042
  2. SOLONDO [Concomitant]
     Indication: RHEUMATOID ARTHRITIS
     Route: 048
  3. AMLODIPINE [Concomitant]
     Indication: HYPERTENSION
     Route: 048
  4. REMICADE [Suspect]
     Dosage: 3RD INFUSION
     Route: 042
  5. SOLONDO [Concomitant]
     Route: 048
  6. FOLIC ACID [Concomitant]
     Indication: DRUG TOXICITY PROPHYLAXIS
     Route: 048
  7. HUMALOG [Concomitant]
     Indication: DIABETES MELLITUS
     Route: 058
  8. METHOTREXATE [Concomitant]
     Indication: RHEUMATOID ARTHRITIS
     Route: 048
  9. REBAMIPIDE [Concomitant]
     Indication: PROPHYLAXIS AGAINST GASTROINTESTINAL ULCER
     Route: 048
  10. LEGALON [Concomitant]
     Route: 048
  11. SOLONDO [Concomitant]
     Route: 048
  12. REMICADE [Suspect]
     Dosage: 4TH INFUSION
     Route: 042
  13. REMICADE [Suspect]
     Dosage: 2ND INFUSION
     Route: 042
  14. ANTITUBERCULOSIS DRUG NOS [Suspect]
     Indication: TUBERCULOSIS
  15. ATACAND [Concomitant]
     Indication: HYPERTENSION
     Route: 048
  16. URSODIOL [Concomitant]
     Indication: HEPATIC ENZYME INCREASED
     Route: 048

REACTIONS (2)
  - PULMONARY TUBERCULOSIS [None]
  - HEPATOTOXICITY [None]
